FAERS Safety Report 21441984 (Version 1)
Quarter: 2022Q4

REPORT INFORMATION
  Report Type: Spontaneous
  Country: US (occurrence: US)
  Receive Date: 20221011
  Receipt Date: 20221011
  Transmission Date: 20230113
  Serious: No
  Sender: FDA-Public Use
  Company Number: US-Sprout Pharmaceuticals, Inc.-2022SP000024

PATIENT
  Age: 46 Year
  Sex: Female
  Weight: 88.530 kg

DRUGS (8)
  1. ADDYI [Suspect]
     Active Substance: FLIBANSERIN
     Indication: Libido decreased
     Dosage: NO REFILLS AFTER NOV-2020
     Route: 048
     Dates: start: 20201023, end: 202011
  2. ADDYI [Suspect]
     Active Substance: FLIBANSERIN
     Route: 048
     Dates: start: 202109, end: 20211201
  3. HERBALS\TURMERIC [Concomitant]
     Active Substance: HERBALS\TURMERIC
     Indication: Product used for unknown indication
  4. SEA BUCKTHORN [Concomitant]
     Indication: Product used for unknown indication
  5. UNSPECIFIED INGREDIENT [Concomitant]
     Active Substance: UNSPECIFIED INGREDIENT
     Indication: Product used for unknown indication
  6. HERBALS [Concomitant]
     Active Substance: HERBALS
     Indication: Product used for unknown indication
  7. LYMPHATIC DETOX [Concomitant]
     Indication: Product used for unknown indication
  8. HYDROCHLOROTHIAZIDE\TRIAMTERENE [Concomitant]
     Active Substance: HYDROCHLOROTHIAZIDE\TRIAMTERENE
     Indication: Hypertension

REACTIONS (5)
  - Dyskinesia [Not Recovered/Not Resolved]
  - Dental caries [Recovered/Resolved]
  - SARS-CoV-2 test positive [Recovered/Resolved]
  - Product use in unapproved indication [Unknown]
  - Drug ineffective [Not Recovered/Not Resolved]

NARRATIVE: CASE EVENT DATE: 20201013
